FAERS Safety Report 25406588 (Version 1)
Quarter: 2025Q2

REPORT INFORMATION
  Report Type: Spontaneous
  Country: US (occurrence: US)
  Receive Date: 20250606
  Receipt Date: 20250606
  Transmission Date: 20250717
  Serious: No
  Sender: BAUSCH AND LOMB
  Company Number: US-BAUSCHBL-2025BNL009994

PATIENT
  Age: 67 Year
  Sex: Female
  Weight: 73 kg

DRUGS (2)
  1. XIIDRA [Suspect]
     Active Substance: LIFITEGRAST
     Indication: Product used for unknown indication
     Route: 047
  2. IBUPROFEN [Concomitant]
     Active Substance: IBUPROFEN
     Indication: Product used for unknown indication

REACTIONS (11)
  - Oral disorder [Not Recovered/Not Resolved]
  - Hypoaesthesia [Unknown]
  - Ear discomfort [Unknown]
  - Throat irritation [Unknown]
  - Neck pain [Unknown]
  - Pain in jaw [Unknown]
  - Lymph node pain [Unknown]
  - Eye irritation [Unknown]
  - Hypersensitivity [Unknown]
  - Eye pruritus [Unknown]
  - Product taste abnormal [Unknown]

NARRATIVE: CASE EVENT DATE: 20250501
